FAERS Safety Report 4916759-0 (Version None)
Quarter: 2006Q1

REPORT INFORMATION
  Report Type: 
  Country: None (occurrence: None)
  Receive Date: 20060216
  Receipt Date: 20060216
  Transmission Date: 20060701
  Serious: Yes (Death)
  Sender: FDA-Public Use
  Company Number: None

PATIENT
  Age: 69 Year
  Sex: Male
  Weight: 87 kg

DRUGS (2)
  1. APROTININ [Suspect]
     Indication: OPERATIVE HAEMORRHAGE
     Dosage: 25 ML/HR -+BOLUS- CONTINUOUS IV DRIP  7-8 HOURS
     Route: 041
     Dates: start: 20051110
  2. NOVOSEVEN [Suspect]
     Indication: POST PROCEDURAL HAEMORRHAGE
     Dosage: 1200 MCG   ONCE X 2 IV BOLUS
     Route: 040
     Dates: start: 20051110, end: 20051111

REACTIONS (9)
  - HAEMORRHAGE CORONARY ARTERY [None]
  - LACTIC ACIDOSIS [None]
  - MEDIASTINAL DISORDER [None]
  - MULTI-ORGAN FAILURE [None]
  - POST PROCEDURAL HAEMORRHAGE [None]
  - RENAL TUBULAR NECROSIS [None]
  - RESPIRATORY FAILURE [None]
  - THROMBOSIS [None]
  - UNEVALUABLE EVENT [None]
